FAERS Safety Report 6730818-1 (Version None)
Quarter: 2010Q2

REPORT INFORMATION
  Report Type: 
  Country: None (occurrence: None)
  Receive Date: 20100514
  Receipt Date: 20100427
  Transmission Date: 20101027
  Serious: Yes (Death)
  Sender: FDA-Public Use
  Company Number: APP201000303

PATIENT
  Age: 46 Year
  Sex: Male

DRUGS (8)
  1. CARBOPLATIN [Suspect]
     Indication: MALIGNANT MELANOMA
  2. DEXAMETHASONE [Suspect]
     Indication: MALIGNANT MELANOMA
     Dosage: 4 MG, 1 IN 1 D, ORAL
     Route: 048
  3. MOVICOL (NULYTELY /01053601/) [Suspect]
     Indication: CONSTIPATION
     Dosage: 6 SACHET, 1 IN 1 D, ORAL
     Route: 048
  4. NAPROXEN [Suspect]
     Indication: PAIN
     Dosage: 500 MG, 2 IN 1 D
  5. MORPHINE SULPHATE (SLOW RELEASE) [Concomitant]
  6. MIDAZOLAM HCL [Concomitant]
  7. WARFARIN SODIUM [Concomitant]
  8. DIAMORPHINE [Concomitant]

REACTIONS (31)
  - ABDOMINAL PAIN [None]
  - AGGRESSION [None]
  - AGITATION [None]
  - ASTHENIA [None]
  - BACK PAIN [None]
  - BLOOD BICARBONATE DECREASED [None]
  - BLOOD CREATININE INCREASED [None]
  - BLOOD OSMOLARITY DECREASED [None]
  - BLOOD POTASSIUM INCREASED [None]
  - BLOOD UREA INCREASED [None]
  - CONFUSIONAL STATE [None]
  - CONSTIPATION [None]
  - DEEP VEIN THROMBOSIS [None]
  - HAEMOGLOBIN DECREASED [None]
  - HYPERHIDROSIS [None]
  - HYPONATRAEMIA [None]
  - HYPOTENSION [None]
  - INTERNATIONAL NORMALISED RATIO INCREASED [None]
  - LETHARGY [None]
  - MALIGNANT NEOPLASM PROGRESSION [None]
  - METASTASES TO ADRENALS [None]
  - METASTASES TO LIVER [None]
  - METASTASES TO NECK [None]
  - METASTASES TO SKIN [None]
  - NEPHROPATHY TOXIC [None]
  - PULMONARY EMBOLISM [None]
  - RENAL IMPAIRMENT [None]
  - RETROPERITONEAL LYMPHADENOPATHY [None]
  - SECONDARY ADRENOCORTICAL INSUFFICIENCY [None]
  - TACHYCARDIA [None]
  - URINE SODIUM INCREASED [None]
